FAERS Safety Report 5720079-4 (Version None)
Quarter: 2008Q2

REPORT INFORMATION
  Report Type: 
  Country: None (occurrence: None)
  Receive Date: 20080428
  Receipt Date: 20080417
  Transmission Date: 20081010
  Serious: Yes (Hospitalization)
  Sender: FDA-Public Use
  Company Number: DE-SANOFI-SYNTHELABO-F01200800156

PATIENT
  Sex: Male

DRUGS (7)
  1. ELIGARD [Suspect]
     Indication: PROSTATE CANCER
     Route: 058
     Dates: start: 20070628, end: 20070628
  2. INSULIN HUMAN [Concomitant]
     Indication: DIABETES MELLITUS
     Dosage: UNK
     Dates: start: 20070909
  3. CALCIUM CARBONATE [Concomitant]
     Indication: OSTEOPOROSIS
     Dosage: UNK
     Dates: start: 20070501
  4. CAPTOPRIL [Concomitant]
     Indication: OEDEMA
     Dosage: UNK
     Dates: start: 20060901
  5. DIGITOXIN TAB [Concomitant]
     Indication: CARDIAC FAILURE
     Dosage: UNK
     Dates: start: 20060901
  6. PHENPROCOUMON [Concomitant]
     Dosage: UNK
  7. CASODEX [Suspect]
     Indication: PROSTATE CANCER
     Route: 048
     Dates: start: 20070629, end: 20070728

REACTIONS (6)
  - CARDIOMYOPATHY [None]
  - DYSPNOEA [None]
  - HEPATIC STEATOSIS [None]
  - LYMPHADENOPATHY [None]
  - PLEURAL FIBROSIS [None]
  - RENAL CYST [None]
